FAERS Safety Report 22655310 (Version 3)
Quarter: 2025Q1

REPORT INFORMATION
  Report Type: Report from Study
  Country: US (occurrence: US)
  Receive Date: 20230629
  Receipt Date: 20250106
  Transmission Date: 20250408
  Serious: No
  Sender: TAKEDA
  Company Number: US-TAKEDA-2023TUS005345

PATIENT
  Sex: Male
  Weight: 81 kg

DRUGS (19)
  1. HUMAN IMMUNOGLOBULIN G [Suspect]
     Active Substance: HUMAN IMMUNOGLOBULIN G
     Indication: Immunodeficiency common variable
     Dosage: 8 GRAM, 1/WEEK
     Dates: start: 20211015
  2. ACETAMINOPHEN [Concomitant]
     Active Substance: ACETAMINOPHEN
  3. NIFEDIPINE [Concomitant]
     Active Substance: NIFEDIPINE
  4. BACTRIM [Concomitant]
     Active Substance: SULFAMETHOXAZOLE\TRIMETHOPRIM
  5. EPOGEN [Concomitant]
     Active Substance: ERYTHROPOIETIN
  6. VITAMIN D [Concomitant]
     Active Substance: VITAMIN D NOS
  7. LOSARTAN POTASSIUM [Concomitant]
     Active Substance: LOSARTAN POTASSIUM
  8. ALLOPURINOL [Concomitant]
     Active Substance: ALLOPURINOL
  9. SEVELAMER CARBONATE [Concomitant]
     Active Substance: SEVELAMER CARBONATE
  10. LIDOCAINE [Concomitant]
     Active Substance: LIDOCAINE
  11. PREDNISONE [Concomitant]
     Active Substance: PREDNISONE
  12. CALCITRIOL [Concomitant]
     Active Substance: CALCITRIOL
  13. DIPHENHYDRAMINE HYDROCHLORIDE [Concomitant]
     Active Substance: DIPHENHYDRAMINE HYDROCHLORIDE
  14. FUROSEMIDE [Concomitant]
     Active Substance: FUROSEMIDE
  15. CARVEDILOL [Concomitant]
     Active Substance: CARVEDILOL
  16. PROLIA [Concomitant]
     Active Substance: DENOSUMAB
  17. EPINEPHRINE [Concomitant]
     Active Substance: EPINEPHRINE
  18. DIPHENHYDRAMINE [Concomitant]
     Active Substance: DIPHENHYDRAMINE
  19. Lmx [Concomitant]

REACTIONS (3)
  - Weight decreased [Unknown]
  - Product dose omission issue [Unknown]
  - Infection [Unknown]
